FAERS Safety Report 16777652 (Version 1)
Quarter: 2019Q3

REPORT INFORMATION
  Report Type: Report from Study
  Country: GB (occurrence: GB)
  Receive Date: 20190905
  Receipt Date: 20190905
  Transmission Date: 20191005
  Serious: Yes (Hospitalization)
  Sender: FDA-Public Use
  Company Number: GB-PFIZER INC-2019378554

PATIENT
  Weight: 28.1 kg

DRUGS (9)
  1. MITOXANTRONE HCL [Suspect]
     Active Substance: MITOXANTRONE HYDROCHLORIDE
     Indication: ACUTE MYELOID LEUKAEMIA
     Dosage: 12 MG/M2, 1X/DAY
     Route: 042
     Dates: start: 20190803, end: 20190806
  2. CYTARABINE. [Suspect]
     Active Substance: CYTARABINE
     Indication: ACUTE MYELOID LEUKAEMIA
     Dosage: 110 MG, UNK
     Route: 042
     Dates: start: 20190803
  3. COTRIMOXAZOLE [Concomitant]
     Active Substance: SULFAMETHOXAZOLE\TRIMETHOPRIM
     Indication: PROPHYLAXIS
     Dosage: 480 MG, 2X/DAY
     Dates: start: 20190803
  4. ONDANSETRAN [Concomitant]
     Active Substance: ONDANSETRON HYDROCHLORIDE
     Indication: NAUSEA
     Dosage: 5.4 MG, AS NEEDED
     Dates: start: 20190803
  5. GEMTUZUMAB OZOGAMICIN [Suspect]
     Active Substance: GEMTUZUMAB OZOGAMICIN
     Indication: ACUTE MYELOID LEUKAEMIA
     Dosage: 3.3 MG, UNK (OTHER)
     Route: 042
     Dates: start: 20190807, end: 20190807
  6. CIPROFLOXACIN. [Concomitant]
     Active Substance: CIPROFLOXACIN
     Indication: PROPHYLAXIS
     Dosage: 300 MG, 2X/DAY
     Dates: start: 20190803
  7. AMILORIDE [Concomitant]
     Active Substance: AMILORIDE
     Dosage: 2.8 MG, 2X/DAY
     Dates: start: 20190804
  8. TEICOPLANIN [Concomitant]
     Active Substance: TEICOPLANIN
     Indication: GRAM STAIN
     Dosage: 282 MG, 2X/DAY
     Dates: start: 20190825
  9. AMBISONE [Concomitant]
     Active Substance: AMPHOTERICIN B
     Indication: PROPHYLAXIS
     Dosage: 75 MG, 1X/DAY
     Dates: start: 20190803

REACTIONS (4)
  - Febrile neutropenia [Not Recovered/Not Resolved]
  - Abdominal pain [Not Recovered/Not Resolved]
  - Vomiting [Not Recovered/Not Resolved]
  - Diarrhoea [Not Recovered/Not Resolved]

NARRATIVE: CASE EVENT DATE: 20190827
